FAERS Safety Report 7028440-5 (Version None)
Quarter: 2010Q4

REPORT INFORMATION
  Report Type: 
  Country: None (occurrence: None)
  Receive Date: 20101001
  Receipt Date: 20101001
  Transmission Date: 20110411
  Serious: Yes (Hospitalization)
  Sender: FDA-Public Use
  Company Number: None

PATIENT
  Age: 39 Year
  Sex: Male
  Weight: 133.8 kg

DRUGS (1)
  1. WARFARIN SODIUM [Suspect]
     Indication: DEEP VEIN THROMBOSIS
     Dosage: 5 MG OTHER PO
     Route: 048
     Dates: start: 20100803, end: 20100824

REACTIONS (6)
  - DIVERTICULUM [None]
  - DIZZINESS [None]
  - EROSIVE DUODENITIS [None]
  - GASTRIC HAEMORRHAGE [None]
  - HAEMORRHOIDS [None]
  - HYPOTENSION [None]
